FAERS Safety Report 21983856 (Version 2)
Quarter: 2023Q1

REPORT INFORMATION
  Report Type: Spontaneous
  Country: JP (occurrence: JP)
  Receive Date: 20230213
  Receipt Date: 20230319
  Transmission Date: 20230418
  Serious: Yes (Other)
  Sender: FDA-Public Use
  Company Number: JP-UCBJ-CD202301643UCBPHAPROD

PATIENT
  Age: 80 Year
  Sex: Male

DRUGS (4)
  1. VIMPAT [Suspect]
     Active Substance: LACOSAMIDE
     Indication: Petit mal epilepsy
     Dosage: 150 MILLIGRAM, ONCE DAILY (QD)
     Route: 048
  2. VIMPAT [Suspect]
     Active Substance: LACOSAMIDE
     Dosage: 100 MILLIGRAM, ONCE DAILY (QD)
     Route: 048
  3. VIMPAT [Suspect]
     Active Substance: LACOSAMIDE
     Dosage: 25 MILLIGRAM
     Route: 048
  4. FYCOMPA [Concomitant]
     Active Substance: PERAMPANEL
     Indication: Product used for unknown indication
     Dosage: UNK

REACTIONS (11)
  - Altered state of consciousness [Unknown]
  - Petit mal epilepsy [Unknown]
  - Neuroleptic malignant syndrome [Unknown]
  - Dizziness [Not Recovered/Not Resolved]
  - Agitation [Unknown]
  - Anger [Unknown]
  - Labile blood pressure [Unknown]
  - Fall [Unknown]
  - Personality change [Not Recovered/Not Resolved]
  - Somnolence [Unknown]
  - Off label use [Unknown]
